FAERS Safety Report 6736063-8 (Version None)
Quarter: 2010Q2

REPORT INFORMATION
  Report Type: 
  Country: None (occurrence: None)
  Receive Date: 20100521
  Receipt Date: 20100512
  Transmission Date: 20101027
  Serious: Yes (Hospitalization)
  Sender: FDA-Public Use
  Company Number: BE-PFIZER INC-2006021272

PATIENT
  Age: 66 Year
  Sex: Male

DRUGS (10)
  1. SUNITINIB MALATE [Suspect]
     Indication: RENAL CELL CARCINOMA
     Dosage: 50 MG, 1X/DAY, 4 WEEKS ON/2 WEEKS OFF
     Route: 048
     Dates: start: 20051129, end: 20051208
  2. SUNITINIB MALATE [Suspect]
     Dosage: 37.5 MG, 1X/DAY, 4 WEEKS ON/2 WEEKS OFF
     Route: 048
     Dates: start: 20051216, end: 20060102
  3. SUNITINIB MALATE [Suspect]
     Dosage: 37.5 MG, 1X/DAY, 4 WEEKS ON/2 WEEKS OFF
     Route: 048
     Dates: start: 20060117
  4. AMLODIPINE [Concomitant]
     Dosage: UNK
     Route: 065
     Dates: start: 20051208
  5. MORPHINE SULFATE [Concomitant]
     Dosage: UNK
     Route: 065
     Dates: start: 20050601
  6. ZOLPIDEM TARTRATE [Concomitant]
     Dosage: UNK
     Route: 065
     Dates: start: 20051129
  7. DOMPERIDONE [Concomitant]
     Dosage: UNK
     Route: 065
     Dates: start: 20051101
  8. PARACETAMOL [Concomitant]
     Dosage: UNK
     Route: 065
     Dates: start: 20050501
  9. ZOLEDRONIC ACID [Concomitant]
     Dosage: UNK
     Route: 065
     Dates: start: 20040707
  10. ALIZAPRIDE [Concomitant]
     Dosage: UNK
     Route: 065
     Dates: start: 20060201

REACTIONS (3)
  - DIZZINESS [None]
  - FACIAL PALSY [None]
  - HYPOACUSIS [None]
